FAERS Safety Report 8046579-2 (Version None)
Quarter: 2012Q1

REPORT INFORMATION
  Report Type: 
  Country: None (occurrence: None)
  Receive Date: 20120113
  Receipt Date: 20120106
  Transmission Date: 20120608
  Serious: Yes (Death, Hospitalization, Other)
  Sender: FDA-Public Use
  Company Number: US-GILEAD-2011-0048442

PATIENT
  Age: 38 Year
  Sex: Male

DRUGS (2)
  1. BACTRIM [Suspect]
     Indication: ANTIFUNGAL PROPHYLAXIS
     Dosage: UNK
     Route: 048
     Dates: start: 20111010, end: 20111219
  2. COMPLERA [Suspect]
     Indication: HIV INFECTION
     Dosage: 1 DF, QD
     Dates: start: 20110908, end: 20111231

REACTIONS (13)
  - FATIGUE [None]
  - MYALGIA [None]
  - IMMUNE RECONSTITUTION SYNDROME [None]
  - HYPERSENSITIVITY [None]
  - PLATELET COUNT DECREASED [None]
  - WEIGHT DECREASED [None]
  - NIGHT SWEATS [None]
  - DEATH [None]
  - VOMITING [None]
  - URINARY TRACT INFECTION [None]
  - JAUNDICE [None]
  - POLYURIA [None]
  - PNEUMONIA PRIMARY ATYPICAL [None]
